FAERS Safety Report 8234398-3 (Version None)
Quarter: 2012Q1

REPORT INFORMATION
  Report Type: 
  Country: None (occurrence: None)
  Receive Date: 20120326
  Receipt Date: 20120319
  Transmission Date: 20120608
  Serious: Yes (Other)
  Sender: FDA-Public Use
  Company Number: US-JNJFOC-20120309890

PATIENT
  Age: 52 Year
  Sex: Female
  Weight: 65.77 kg

DRUGS (1)
  1. COOLMINT LISTERINE [Suspect]
     Indication: DENTAL DISORDER PROPHYLAXIS
     Dosage: ^A SMALL AMOUNT IN THE CAP^ TWO TO THREE TIMES A DAY
     Route: 048
     Dates: start: 20120201

REACTIONS (9)
  - DIZZINESS [None]
  - NAUSEA [None]
  - PRODUCT QUALITY ISSUE [None]
  - HEADACHE [None]
  - LYMPHADENOPATHY [None]
  - DIARRHOEA [None]
  - FALL [None]
  - VOMITING [None]
  - OROPHARYNGEAL PAIN [None]
